FAERS Safety Report 5357222-5 (Version None)
Quarter: 2007Q2

REPORT INFORMATION
  Report Type: 
  Country: None (occurrence: None)
  Receive Date: 20070614
  Receipt Date: 20070604
  Transmission Date: 20071010
  Serious: Yes (Other)
  Sender: FDA-Public Use
  Company Number: JP-JNJFOC-20070602076

PATIENT
  Age: 14 Year
  Sex: Male

DRUGS (2)
  1. ITRIZOLE [Suspect]
     Indication: INFECTION PROPHYLAXIS
     Route: 048
  2. BAKTAR [Concomitant]
     Route: 048

REACTIONS (1)
  - SKIN DISCOLOURATION [None]
